FAERS Safety Report 5486546-6 (Version None)
Quarter: 2007Q4

REPORT INFORMATION
  Report Type: 
  Country: None (occurrence: None)
  Receive Date: 20071012
  Receipt Date: 20071004
  Transmission Date: 20080405
  Serious: Yes (Death, Hospitalization)
  Sender: FDA-Public Use
  Company Number: 237990K07USA

PATIENT
  Age: 36 Year
  Sex: Female

DRUGS (4)
  1. REBIF [Suspect]
     Indication: MULTIPLE SCLEROSIS
     Dosage: 44 MCG, 3 IN 1 WEEKS, SUBCUTANEOUS
     Route: 058
     Dates: start: 20050926, end: 20070914
  2. DULOXETINE (DULOXETINE) [Concomitant]
  3. FOLIC ACID [Concomitant]
  4. VERAPAMIL CR (VERAPAMIL) [Concomitant]

REACTIONS (2)
  - ENCEPHALITIS VIRAL [None]
  - INJECTION SITE CELLULITIS [None]
